FAERS Safety Report 23234534 (Version 1)
Quarter: 2023Q4

REPORT INFORMATION
  Report Type: Spontaneous
  Country: MY (occurrence: MY)
  Receive Date: 20231128
  Receipt Date: 20231128
  Transmission Date: 20240110
  Serious: Yes (Other)
  Sender: FDA-Public Use
  Company Number: MY-002147023-NVSC2023MY247744

PATIENT

DRUGS (1)
  1. RUXOLITINIB [Suspect]
     Active Substance: RUXOLITINIB
     Indication: Primary myelofibrosis
     Dosage: 20 MG, BID
     Route: 065
     Dates: start: 202104

REACTIONS (13)
  - Neutrophil count increased [Unknown]
  - Cough [Unknown]
  - Tuberculosis [Unknown]
  - Granulomatous lymphadenitis [Unknown]
  - Haemoglobin decreased [Unknown]
  - Blood lactate dehydrogenase increased [Unknown]
  - Lethargy [Unknown]
  - Weight decreased [Unknown]
  - Lymphadenitis [Unknown]
  - Platelet count decreased [Unknown]
  - Thrombocytopenia [Unknown]
  - White blood cell count increased [Unknown]
  - Anaemia [Unknown]

NARRATIVE: CASE EVENT DATE: 20210101
